FAERS Safety Report 4582364-1 (Version None)
Quarter: 2005Q1

REPORT INFORMATION
  Report Type: 
  Country: None (occurrence: None)
  Receive Date: 20050119
  Receipt Date: 20040217
  Transmission Date: 20050727
  Serious: Yes (Other)
  Sender: FDA-Public Use
  Company Number: US-JNJFOC-20031102012

PATIENT
  Age: 79 Year
  Sex: Male

DRUGS (13)
  1. DOXIL [Suspect]
     Indication: LYMPHOMA
     Dosage: SEE IMAGE
     Route: 042
     Dates: start: 20030103, end: 20030103
  2. DOXIL [Suspect]
     Indication: LYMPHOMA
     Dosage: SEE IMAGE
     Route: 042
     Dates: start: 20030203, end: 20030303
  3. DOXIL [Suspect]
     Indication: LYMPHOMA
     Dosage: SEE IMAGE
     Route: 042
     Dates: start: 20030331, end: 20030331
  4. LOPRESSOR [Concomitant]
  5. CYTOXAN [Concomitant]
  6. VINCRISTINE [Concomitant]
  7. RITUXAN [Concomitant]
  8. VALTREX [Concomitant]
  9. PREDNISONE [Concomitant]
  10. PLAVIX [Concomitant]
  11. IMDUR [Concomitant]
  12. REGLAN [Concomitant]
  13. ATIVAN [Concomitant]

REACTIONS (5)
  - ANAEMIA [None]
  - DYSPHASIA [None]
  - LEUKOPENIA [None]
  - NIPPLE PAIN [None]
  - PNEUMONIA [None]
